FAERS Safety Report 7392180-3 (Version None)
Quarter: 2011Q2

REPORT INFORMATION
  Report Type: 
  Country: None (occurrence: None)
  Receive Date: 20110404
  Receipt Date: 20110325
  Transmission Date: 20111010
  Serious: Yes (Hospitalization)
  Sender: FDA-Public Use
  Company Number: B0700927A

PATIENT
  Age: 50 Year
  Sex: Female
  Weight: 44 kg

DRUGS (7)
  1. LAMICTAL [Suspect]
     Dosage: 25MG TWICE PER DAY
     Route: 048
     Dates: start: 20100315, end: 20100411
  2. DEPAKENE [Concomitant]
     Route: 048
     Dates: start: 20100301
  3. DEPAKENE [Concomitant]
     Route: 048
     Dates: start: 20070101, end: 20100301
  4. VALPROATE SODIUM [Concomitant]
  5. FLOMAX [Concomitant]
     Route: 048
     Dates: start: 20100329, end: 20100402
  6. AMLODIN [Concomitant]
     Route: 048
  7. HALCION [Concomitant]
     Route: 048

REACTIONS (19)
  - OEDEMA PERIPHERAL [None]
  - LYMPHOCYTE STIMULATION TEST POSITIVE [None]
  - PYREXIA [None]
  - HEPATIC FUNCTION ABNORMAL [None]
  - HYPOPROTEINAEMIA [None]
  - RASH [None]
  - PAPULE [None]
  - C-REACTIVE PROTEIN INCREASED [None]
  - DRUG ERUPTION [None]
  - EOSINOPHILIA [None]
  - INFECTIOUS MONONUCLEOSIS [None]
  - HEPATIC ENZYME INCREASED [None]
  - BLOOD LACTATE DEHYDROGENASE INCREASED [None]
  - DRUG RASH WITH EOSINOPHILIA AND SYSTEMIC SYMPTOMS [None]
  - LYMPHADENOPATHY [None]
  - DYSPHORIA [None]
  - LEUKOCYTOSIS [None]
  - ERYTHEMA [None]
  - LYMPHOCYTE COUNT DECREASED [None]
